FAERS Safety Report 19025599 (Version 1)
Quarter: 2021Q1

REPORT INFORMATION
  Report Type: Spontaneous
  Country: US (occurrence: US)
  Receive Date: 20210316
  Receipt Date: 20210316
  Transmission Date: 20210420
  Serious: Yes (Life-Threatening, Hospitalization)
  Sender: FDA-Public Use
  Company Number: None

PATIENT
  Age: 86 Year
  Sex: Male
  Weight: 80.15 kg

DRUGS (1)
  1. CEFTRIAXONE CEFTRIAXONE NA 10GM/VIL INJ [Suspect]
     Active Substance: CEFTRIAXONE SODIUM
     Dosage: ?          OTHER ROUTE:IV?
     Route: 042
     Dates: start: 20190522, end: 20190522

REACTIONS (1)
  - Anaphylactic reaction [None]

NARRATIVE: CASE EVENT DATE: 20190522
